FAERS Safety Report 18467341 (Version 1)
Quarter: 2020Q4

REPORT INFORMATION
  Report Type: Spontaneous
  Country: US (occurrence: US)
  Receive Date: 20201105
  Receipt Date: 20201105
  Transmission Date: 20210114
  Serious: Yes (Other)
  Sender: FDA-Public Use
  Company Number: US-STRIDES ARCOLAB LIMITED-2020SP013250

PATIENT
  Age: 48 Year
  Sex: Male

DRUGS (1)
  1. MYCOPHENOLATE MOFETIL. [Suspect]
     Active Substance: MYCOPHENOLATE MOFETIL
     Indication: ORGANISING PNEUMONIA
     Dosage: UNK
     Route: 065

REACTIONS (4)
  - Lipase increased [Unknown]
  - Troponin increased [Unknown]
  - Toxicity to various agents [Unknown]
  - Hepatic function abnormal [Unknown]
